FAERS Safety Report 7539861-6 (Version None)
Quarter: 2011Q2

REPORT INFORMATION
  Report Type: 
  Country: None (occurrence: None)
  Receive Date: 20110610
  Receipt Date: 20110523
  Transmission Date: 20111010
  Serious: Yes (Life-Threatening)
  Sender: FDA-Public Use
  Company Number: US-BAYER-201040889NA

PATIENT
  Age: 33 Year
  Sex: Female
  Weight: 109 kg

DRUGS (11)
  1. LISINOPRIL [Concomitant]
     Dosage: UNK
     Route: 048
     Dates: start: 20060101, end: 20090101
  2. YAZ [Suspect]
     Indication: ORAL CONTRACEPTION
     Dosage: UNK UNK, UNK
     Route: 048
     Dates: start: 20070918, end: 20081230
  3. ADVIL LIQUI-GELS [Concomitant]
     Route: 048
  4. METFORMIN HCL [Concomitant]
     Dosage: 500 MG, BID
  5. ANTIBIOTICS [Concomitant]
     Route: 048
  6. ERYTHROMYCIN [Concomitant]
     Dosage: 250 MG, UNK
     Route: 048
  7. VERAPAMIL [Concomitant]
     Dosage: 240 MG, UNK
     Route: 048
  8. CRESTOR [Concomitant]
     Dosage: 20 MG, UNK
  9. PREVACID [Concomitant]
     Indication: GASTROOESOPHAGEAL REFLUX DISEASE
     Dosage: 30 MG, UNK
     Route: 048
     Dates: start: 20010101, end: 20080101
  10. TANDENE [Concomitant]
     Dosage: UNK UNK, QD
     Route: 048
  11. TRICOR [Concomitant]
     Dosage: 145 MG, UNK
     Route: 048

REACTIONS (5)
  - HEPATIC ADENOMA [None]
  - ORGAN FAILURE [None]
  - HEPATIC NEOPLASM [None]
  - FATIGUE [None]
  - ASTHENIA [None]
